FAERS Safety Report 14700638 (Version 1)
Quarter: 2018Q1

REPORT INFORMATION
  Report Type: Spontaneous
  Country: DE (occurrence: DE)
  Receive Date: 20180330
  Receipt Date: 20180330
  Transmission Date: 20180509
  Serious: Yes (Other)
  Sender: FDA-Public Use
  Company Number: DE-PFIZER INC-2018128724

PATIENT
  Age: 35 Year
  Sex: Female

DRUGS (1)
  1. ANIDULAFUNGIN [Suspect]
     Active Substance: ANIDULAFUNGIN
     Indication: CANDIDA INFECTION
     Dosage: UNK

REACTIONS (4)
  - Tooth disorder [Unknown]
  - Seizure [Recovering/Resolving]
  - Swelling face [Recovered/Resolved]
  - Symptom recurrence [Recovered/Resolved]
